FAERS Safety Report 13538383 (Version 2)
Quarter: 2017Q3

REPORT INFORMATION
  Report Type: Report from Study
  Country: None (occurrence: US)
  Receive Date: 20170512
  Receipt Date: 20170829
  Transmission Date: 20171127
  Serious: Yes (Other)
  Sender: FDA-Public Use
  Company Number: US-ABBVIE-17K-163-1911371-00

PATIENT
  Sex: Male

DRUGS (1)
  1. HUMIRA [Suspect]
     Active Substance: ADALIMUMAB
     Indication: RHEUMATOID ARTHRITIS
     Route: 058

REACTIONS (12)
  - Dry eye [Unknown]
  - Dehydration [Unknown]
  - Varicose vein [Recovered/Resolved with Sequelae]
  - Headache [Unknown]
  - Retinal detachment [Unknown]
  - Dry skin [Unknown]
  - Ingrown hair [Unknown]
  - Tinnitus [Not Recovered/Not Resolved]
  - Rash pruritic [Unknown]
  - Hair disorder [Recovered/Resolved with Sequelae]
  - Scab [Unknown]
  - Hypertension [Unknown]
